FAERS Safety Report 10221303 (Version 1)
Quarter: 2014Q2

REPORT INFORMATION
  Report Type: Spontaneous
  Country: US (occurrence: US)
  Receive Date: 20140606
  Receipt Date: 20140606
  Transmission Date: 20141212
  Serious: No
  Sender: FDA-Public Use
  Company Number: US-GLAXOSMITHKLINE-A1071386A

PATIENT
  Age: 79 Year
  Sex: Male

DRUGS (13)
  1. BREO ELLIPTA [Suspect]
     Indication: CHRONIC OBSTRUCTIVE PULMONARY DISEASE
     Dosage: 1PUFF PER DAY
     Route: 055
     Dates: start: 20140423, end: 20140428
  2. DUONEB [Concomitant]
  3. METOPROLOL [Concomitant]
  4. RANITIDINE [Concomitant]
  5. ASPIRIN [Concomitant]
  6. VYTORIN [Concomitant]
  7. ZOCOR [Concomitant]
  8. VOLTAREN GEL [Concomitant]
  9. LIDOCAINE [Concomitant]
  10. FLOMAX [Concomitant]
  11. VITAMIN D3 [Concomitant]
  12. ENBREL [Concomitant]
  13. CYMBALTA [Concomitant]

REACTIONS (4)
  - Nervousness [Not Recovered/Not Resolved]
  - Muscle twitching [Unknown]
  - Dysphemia [Unknown]
  - Soliloquy [Unknown]
